FAERS Safety Report 9629495 (Version 1)
Quarter: 2013Q4

REPORT INFORMATION
  Report Type: Spontaneous
  Country: FR (occurrence: FR)
  Receive Date: 20131017
  Receipt Date: 20131017
  Transmission Date: 20140711
  Serious: Yes (Other)
  Sender: FDA-Public Use
  Company Number: FR-ASTRAZENECA-2013SE75328

PATIENT
  Age: 883 Month
  Sex: Female

DRUGS (7)
  1. INEXIUM [Suspect]
     Route: 048
  2. DIFFU K [Interacting]
     Route: 048
  3. AROMASINE [Interacting]
     Route: 048
  4. TEMESTA [Interacting]
     Route: 048
  5. NOXAFIL [Interacting]
     Indication: BRONCHOPULMONARY ASPERGILLOSIS
     Route: 048
     Dates: start: 201305, end: 201308
  6. NOXAFIL [Interacting]
     Indication: BRONCHOPULMONARY ASPERGILLOSIS
     Route: 048
     Dates: start: 201308
  7. VFEND [Concomitant]
     Dates: start: 201207, end: 201305

REACTIONS (3)
  - Drug interaction [Unknown]
  - Dermatitis exfoliative [Unknown]
  - Drug ineffective [Not Recovered/Not Resolved]
